FAERS Safety Report 4692319-4 (Version None)
Quarter: 2005Q2

REPORT INFORMATION
  Report Type: 
  Country: None (occurrence: None)
  Receive Date: 20050614
  Receipt Date: 20030317
  Transmission Date: 20051028
  Serious: Yes (Death)
  Sender: FDA-Public Use
  Company Number: 5476

PATIENT
  Age: 50 Year
  Sex: Male

DRUGS (12)
  1. CYTARABINE [Suspect]
     Indication: ACUTE LEUKAEMIA
     Dosage: 2600 MG, IV
     Route: 042
     Dates: start: 20021227, end: 20021231
  2. AMPHOTERCIN [Suspect]
     Indication: INFECTION
     Dosage: IV
     Route: 042
     Dates: start: 20030101, end: 20030117
  3. FLUDARABINE PHOSPHATE [Suspect]
     Indication: ACUTE MYELOID LEUKAEMIA
     Dosage: 55 MG, IV
     Route: 042
     Dates: start: 20021227, end: 20021231
  4. VORICOMAZOLE [Suspect]
     Indication: FUNGAL INFECTION
     Dosage: 400 MG BID, PO
     Route: 048
     Dates: start: 20021227, end: 20021231
  5. VORICOMAZOLE [Suspect]
     Indication: ILL-DEFINED DISORDER
     Dosage: 400 MG BID, PO
     Route: 048
     Dates: start: 20021227, end: 20021231
  6. VORICOMAZOLE [Suspect]
     Indication: LOWER RESPIRATORY TRACT INFECTION
     Dosage: 400 MG BID, PO
     Route: 048
     Dates: start: 20021227, end: 20021231
  7. TEICOPLANIN [Concomitant]
  8. ACYCLOVIR [Concomitant]
  9. SULFAMETHOXAZOLE + TRIMETHOPRIM [Concomitant]
  10. OMEPRAZOLE [Concomitant]
  11. RIBAVIRIN [Concomitant]
  12. CIPROFLOXACIN [Concomitant]

REACTIONS (5)
  - CARDIAC TAMPONADE [None]
  - ENDOCARDITIS [None]
  - NEUROPATHY PERIPHERAL [None]
  - PARAINFLUENZAE VIRUS INFECTION [None]
  - PERICARDIAL HAEMORRHAGE [None]
